FAERS Safety Report 5149299-7 (Version None)
Quarter: 2006Q4

REPORT INFORMATION
  Report Type: 
  Country: None (occurrence: None)
  Receive Date: 20061113
  Receipt Date: 20061108
  Transmission Date: 20070319
  Serious: Yes (Other)
  Sender: FDA-Public Use
  Company Number: JP-JPN-A200604792

PATIENT
  Age: 27 Year
  Sex: Female

DRUGS (10)
  1. PAXIL [Suspect]
     Indication: DEPRESSION
     Dosage: 20MG PER DAY
     Route: 048
  2. FLUMEZIN [Concomitant]
     Route: 048
  3. SOLANAX [Concomitant]
     Route: 048
  4. DEPAKENE [Concomitant]
     Route: 048
  5. RISPERDAL [Concomitant]
     Route: 048
  6. ROHYPNOL [Concomitant]
     Route: 065
  7. LENDORMIN [Concomitant]
     Route: 048
  8. RESLIN [Concomitant]
     Route: 048
  9. LEXOTAN [Concomitant]
     Route: 048
  10. UNKNOWN MEDICATION [Concomitant]
     Route: 065

REACTIONS (1)
  - LOSS OF CONSCIOUSNESS [None]
